FAERS Safety Report 17024909 (Version 2)
Quarter: 2020Q3

REPORT INFORMATION
  Report Type: Spontaneous
  Country: US (occurrence: US)
  Receive Date: 20191113
  Receipt Date: 20200708
  Transmission Date: 20201102
  Serious: Yes (Hospitalization, Other)
  Sender: FDA-Public Use
  Company Number: US-009507513-1803USA010362

PATIENT
  Sex: Female
  Weight: 95.71 kg

DRUGS (4)
  1. STERILE DILUENT (WATER) [Suspect]
     Active Substance: WATER
     Indication: PROPHYLAXIS
  2. STERILE DILUENT (WATER) [Suspect]
     Active Substance: WATER
     Indication: ROUTINE HEALTH MAINTENANCE
     Dosage: UNK
     Route: 058
     Dates: start: 20151101, end: 20151101
  3. ZOSTAVAX [Suspect]
     Active Substance: VARICELLA-ZOSTER VIRUS STRAIN OKA/MERCK LIVE ANTIGEN
     Indication: ROUTINE HEALTH MAINTENANCE
     Dosage: .65 MILLILITER
     Route: 058
     Dates: start: 20151101, end: 20151101
  4. ZOSTAVAX [Suspect]
     Active Substance: VARICELLA-ZOSTER VIRUS STRAIN OKA/MERCK LIVE ANTIGEN
     Indication: PROPHYLAXIS

REACTIONS (21)
  - Renal cyst ruptured [Unknown]
  - Renal injury [Unknown]
  - Chronic obstructive pulmonary disease [Unknown]
  - Major depression [Unknown]
  - Back pain [Unknown]
  - Impaired gastric emptying [Unknown]
  - Carpal tunnel syndrome [Unknown]
  - Haemorrhoids [Unknown]
  - Herpes zoster [Unknown]
  - Weight decreased [Unknown]
  - Gastrooesophageal reflux disease [Unknown]
  - Vaccination failure [Unknown]
  - Rhinitis allergic [Unknown]
  - Rotator cuff syndrome [Unknown]
  - Alcoholism [Unknown]
  - Diabetic neuropathy [Unknown]
  - Myocardial ischaemia [Unknown]
  - Abdominal pain upper [Unknown]
  - Hypertension [Unknown]
  - Post-traumatic stress disorder [Unknown]
  - Headache [Unknown]

NARRATIVE: CASE EVENT DATE: 20160229
